FAERS Safety Report 13875846 (Version 2)
Quarter: 2017Q3

REPORT INFORMATION
  Report Type: Report from Study
  Country: ZA (occurrence: ZA)
  Receive Date: 20170817
  Receipt Date: 20170904
  Transmission Date: 20171127
  Serious: Yes (Death, Hospitalization)
  Sender: FDA-Public Use
  Company Number: ZA-ROCHE-1977808

PATIENT
  Sex: Male

DRUGS (6)
  1. MABTHERA [Suspect]
     Active Substance: RITUXIMAB
     Indication: RHEUMATOID ARTHRITIS
     Dosage: 500MG X2 REPEAT AFTER 2 WEEKS
     Route: 042
     Dates: start: 2013
  2. LYRICA [Concomitant]
     Active Substance: PREGABALIN
     Route: 048
  3. TREPILINE [Concomitant]
     Active Substance: AMITRIPTYLINE
     Route: 065
  4. TRAMAL [Concomitant]
     Active Substance: TRAMADOL
     Route: 048
  5. REMERON [Concomitant]
     Active Substance: MIRTAZAPINE
     Route: 065
  6. METHOTREXATE. [Concomitant]
     Active Substance: METHOTREXATE
     Route: 048

REACTIONS (2)
  - Multiple organ dysfunction syndrome [Fatal]
  - Pneumonia [Unknown]
